FAERS Safety Report 5332300-5 (Version None)
Quarter: 2007Q2

REPORT INFORMATION
  Report Type: 
  Country: None (occurrence: None)
  Receive Date: 20070523
  Receipt Date: 20070514
  Transmission Date: 20071010
  Serious: Yes (Other)
  Sender: FDA-Public Use
  Company Number: JP-MERCK-0705USA01380

PATIENT
  Age: 61 Year
  Sex: Female
  Weight: 48 kg

DRUGS (7)
  1. COZAAR [Suspect]
     Indication: HYPERTENSION
     Route: 048
     Dates: start: 20060929, end: 20070111
  2. COZAAR [Suspect]
     Route: 048
     Dates: start: 20070112, end: 20070208
  3. COZAAR [Suspect]
     Route: 048
     Dates: start: 20070209, end: 20070403
  4. COZAAR [Suspect]
     Route: 048
     Dates: start: 20020101
  5. PEPCID RPD [Suspect]
     Indication: GASTRIC ULCER
     Route: 048
  6. CONIEL [Suspect]
     Indication: HYPERTENSION
     Route: 048
  7. ZOLPIDEM TARTRATE [Suspect]
     Indication: INSOMNIA
     Route: 048
     Dates: start: 20050101

REACTIONS (1)
  - DYSKINESIA [None]
